FAERS Safety Report 8504533-8 (Version None)
Quarter: 2012Q3

REPORT INFORMATION
  Report Type: 
  Country: None (occurrence: None)
  Receive Date: 20120711
  Receipt Date: 20120705
  Transmission Date: 20120928
  Serious: Yes (Other)
  Sender: FDA-Public Use
  Company Number: US-ROCHE-1052739

PATIENT
  Sex: Male
  Weight: 72.64 kg

DRUGS (3)
  1. XELODA [Suspect]
     Indication: COLORECTAL CANCER METASTATIC
     Dosage: EVERY MORNING
     Route: 048
     Dates: start: 20120401
  2. LISINOPRIL [Concomitant]
     Route: 048
  3. XELODA [Suspect]
     Dosage: EVERY MORNING
     Route: 048
     Dates: start: 20120401

REACTIONS (4)
  - BLOOD PRESSURE INCREASED [None]
  - GROIN PAIN [None]
  - DIARRHOEA [None]
  - OEDEMA PERIPHERAL [None]
